FAERS Safety Report 13462940 (Version 2)
Quarter: 2017Q2

REPORT INFORMATION
  Report Type: Spontaneous
  Country: CA (occurrence: CA)
  Receive Date: 20170420
  Receipt Date: 20170428
  Transmission Date: 20170830
  Serious: Yes (Death)
  Sender: FDA-Public Use
  Company Number: CA-ASTRAZENECA-2017SE39611

PATIENT
  Age: 1013 Month
  Sex: Male

DRUGS (1)
  1. TUDORZA PRESSAIR [Suspect]
     Active Substance: ACLIDINIUM BROMIDE
     Indication: CHRONIC OBSTRUCTIVE PULMONARY DISEASE
     Dosage: 400UG, 1 INHALATION, TWO TIMES A DAY
     Route: 055

REACTIONS (6)
  - Gastric cancer [Fatal]
  - Frustration tolerance decreased [Unknown]
  - Death [Fatal]
  - Dyspnoea [Unknown]
  - Device issue [Unknown]
  - Drug dose omission [Unknown]

NARRATIVE: CASE EVENT DATE: 201411
